FAERS Safety Report 9624262 (Version 2)
Quarter: 2014Q1

REPORT INFORMATION
  Report Type: Spontaneous
  Country: US (occurrence: US)
  Receive Date: 20131015
  Receipt Date: 20140127
  Transmission Date: 20141002
  Serious: Yes (Hospitalization)
  Sender: FDA-Public Use
  Company Number: US-UCBSA-099649

PATIENT
  Age: 30 Year
  Sex: Male
  Weight: 87.9 kg

DRUGS (5)
  1. CIMZIA [Suspect]
     Indication: CROHN^S DISEASE
     Route: 058
     Dates: start: 201310
  2. CIMZIA [Suspect]
     Indication: CROHN^S DISEASE
     Route: 058
     Dates: start: 20130606, end: 20130630
  3. CIPRO [Concomitant]
     Indication: URINARY TRACT INFECTION
     Dosage: 500, BID
     Route: 048
     Dates: end: 201312
  4. METRONIDAZOLE [Concomitant]
     Indication: CROHN^S DISEASE
     Dosage: 500, TID
     Route: 048
     Dates: end: 201312
  5. METHOTREXATE [Concomitant]
     Route: 030

REACTIONS (6)
  - Crohn^s disease [Unknown]
  - Urosepsis [Unknown]
  - Pyrexia [Recovered/Resolved]
  - Abdominal pain [Recovered/Resolved]
  - Dehydration [Recovered/Resolved]
  - Heart rate increased [Recovered/Resolved]
